FAERS Safety Report 8150758-3 (Version None)
Quarter: 2012Q1

REPORT INFORMATION
  Report Type: 
  Country: None (occurrence: None)
  Receive Date: 20120220
  Receipt Date: 20120209
  Transmission Date: 20120608
  Serious: No
  Sender: FDA-Public Use
  Company Number: US-B.I. PHARMACEUTICALS,INC./RIDGEFIELD-2012-BP-02614BP

PATIENT
  Sex: Male

DRUGS (18)
  1. SIMVASTATIN [Concomitant]
     Route: 048
  2. CARVEDILOL [Concomitant]
     Route: 048
  3. ASPIRIN [Concomitant]
     Route: 048
  4. VITEYES [Concomitant]
     Route: 048
  5. B-VITAMIN [Concomitant]
     Route: 048
  6. SPIRIVA [Suspect]
     Indication: DYSPNOEA
     Dosage: 18 MCG
     Route: 055
     Dates: start: 20110101
  7. DIGOXIN [Concomitant]
     Route: 048
  8. RAPAFLO [Concomitant]
     Route: 048
  9. LEVOXYL [Concomitant]
     Route: 048
  10. B 6 VITAMIN [Concomitant]
     Route: 048
  11. ALPHAGAN [Concomitant]
  12. FOLIC ACID [Concomitant]
     Route: 048
  13. FUROSEMIDE [Concomitant]
     Route: 048
  14. CENTRUM [Concomitant]
     Route: 048
  15. AZOPT [Concomitant]
  16. NORVASC [Concomitant]
     Route: 048
  17. B 12 VITAMIN [Concomitant]
     Route: 048
  18. IRON [Concomitant]
     Route: 048

REACTIONS (1)
  - EYE INFECTION [None]
